FAERS Safety Report 10043718 (Version 1)
Quarter: 2014Q1

REPORT INFORMATION
  Report Type: Spontaneous
  Country: GB (occurrence: GB)
  Receive Date: 20140328
  Receipt Date: 20140328
  Transmission Date: 20141002
  Serious: Yes (Life-Threatening)
  Sender: FDA-Public Use
  Company Number: GB-ABBVIE-14K-167-1218026-00

PATIENT
  Age: 24 Year
  Sex: Female

DRUGS (7)
  1. SODIUM VALPROATE [Suspect]
     Indication: PRODUCT USED FOR UNKNOWN INDICATION
  2. LEVETIRACETAM [Suspect]
     Indication: ILL-DEFINED DISORDER
  3. PRIADEL [Suspect]
     Indication: PRODUCT USED FOR UNKNOWN INDICATION
  4. RANITIDINE [Suspect]
     Indication: PRODUCT USED FOR UNKNOWN INDICATION
  5. MONTELUKAST [Suspect]
     Indication: PRODUCT USED FOR UNKNOWN INDICATION
  6. VENTOLINE [Suspect]
     Indication: PRODUCT USED FOR UNKNOWN INDICATION
  7. SERETIDE [Suspect]
     Indication: PRODUCT USED FOR UNKNOWN INDICATION

REACTIONS (1)
  - Angioedema [Recovered/Resolved]
